FAERS Safety Report 9272639 (Version 4)
Quarter: 2013Q3

REPORT INFORMATION
  Report Type: Spontaneous
  Country: FR (occurrence: FR)
  Receive Date: 20130506
  Receipt Date: 20130808
  Transmission Date: 20140515
  Serious: Yes (Death, Other)
  Sender: FDA-Public Use
  Company Number: FR-ASTRAZENECA-2013SE30370

PATIENT
  Age: 887 Month
  Sex: Female
  Weight: 67 kg

DRUGS (15)
  1. XEROQUEL [Suspect]
     Indication: BIPOLAR DISORDER
     Route: 048
     Dates: start: 201112
  2. XEROQUEL [Suspect]
     Indication: DEPRESSION
     Route: 048
     Dates: start: 201112
  3. XEROQUEL [Suspect]
     Indication: BIPOLAR DISORDER
     Route: 048
     Dates: start: 201112, end: 201212
  4. XEROQUEL [Suspect]
     Indication: DEPRESSION
     Route: 048
     Dates: start: 201112, end: 201212
  5. XEROQUEL [Suspect]
     Indication: BIPOLAR DISORDER
     Route: 048
     Dates: start: 201212, end: 201302
  6. XEROQUEL [Suspect]
     Indication: DEPRESSION
     Route: 048
     Dates: start: 201212, end: 201302
  7. XEROQUEL [Suspect]
     Indication: BIPOLAR DISORDER
     Route: 048
     Dates: start: 201302, end: 201302
  8. XEROQUEL [Suspect]
     Indication: DEPRESSION
     Route: 048
     Dates: start: 201302, end: 201302
  9. XEROQUEL [Suspect]
     Indication: BIPOLAR DISORDER
     Route: 048
     Dates: start: 201302
  10. XEROQUEL [Suspect]
     Indication: DEPRESSION
     Route: 048
     Dates: start: 201302
  11. NORSET [Suspect]
     Indication: BIPOLAR DISORDER
     Route: 065
     Dates: start: 201111
  12. NORSET [Suspect]
     Indication: DEPRESSION
     Route: 065
     Dates: start: 201111
  13. NORSET [Suspect]
     Indication: BIPOLAR DISORDER
     Route: 048
     Dates: start: 201302
  14. NORSET [Suspect]
     Indication: DEPRESSION
     Route: 048
     Dates: start: 201302
  15. OGAST [Concomitant]

REACTIONS (9)
  - Cardio-respiratory arrest [Fatal]
  - Cataract [Unknown]
  - Sudden death [Fatal]
  - Dyspnoea [Unknown]
  - Depression [Unknown]
  - Hyperglycaemia [Unknown]
  - Weight increased [Unknown]
  - Fatigue [Unknown]
  - Drug ineffective [Unknown]
